FAERS Safety Report 11335214 (Version 1)
Quarter: 2015Q3

REPORT INFORMATION
  Report Type: Spontaneous
  Country: US (occurrence: None)
  Receive Date: 20150731
  Receipt Date: 20150731
  Transmission Date: 20151125
  Serious: No
  Sender: FDA-Public Use
  Company Number: None

PATIENT
  Age: 74 Year
  Sex: Male

DRUGS (24)
  1. HYDROXYZINE [Concomitant]
     Active Substance: HYDROXYZINE\HYDROXYZINE HYDROCHLORIDE
  2. SENNA [Concomitant]
     Active Substance: SENNA LEAF\SENNOSIDES\SENNOSIDES A AND B
  3. ALTEPLASE [Concomitant]
     Active Substance: ALTEPLASE
  4. ROSUVASTATIN [Concomitant]
     Active Substance: ROSUVASTATIN
  5. DIGOXIN. [Concomitant]
     Active Substance: DIGOXIN
  6. DOCUSATE [Concomitant]
     Active Substance: DOCUSATE
  7. INSULIN [Concomitant]
     Active Substance: INSULIN NOS
  8. PHENYTOIN. [Concomitant]
     Active Substance: PHENYTOIN
  9. POTASSIUM CHLORIDE. [Concomitant]
     Active Substance: POTASSIUM CHLORIDE
  10. ALBUTEROL. [Concomitant]
     Active Substance: ALBUTEROL
  11. METOPROLOL [Concomitant]
     Active Substance: METOPROLOL
  12. VANCOMYCIN [Concomitant]
     Active Substance: VANCOMYCIN
  13. BACLOFEN. [Concomitant]
     Active Substance: BACLOFEN
  14. FUROSEMIDE. [Concomitant]
     Active Substance: FUROSEMIDE
  15. LANSOPRAZOLE. [Concomitant]
     Active Substance: LANSOPRAZOLE
  16. WARFARIN [Suspect]
     Active Substance: WARFARIN
     Indication: ATRIAL FIBRILLATION
     Route: 048
     Dates: start: 20141107, end: 20141107
  17. DILTIAZEM [Concomitant]
     Active Substance: DILTIAZEM
  18. METOLAZONE. [Concomitant]
     Active Substance: METOLAZONE
  19. SIMETHICONE (DIMETHICONE) [Concomitant]
     Active Substance: DIMETHICONE
  20. ASPIRIN. [Concomitant]
     Active Substance: ASPIRIN
  21. CETIRIZINE [Concomitant]
     Active Substance: CETIRIZINE HYDROCHLORIDE
  22. HYDROCORTISONE. [Concomitant]
     Active Substance: HYDROCORTISONE
  23. KETOCORAZOLE [Concomitant]
  24. QUETIAPINE [Concomitant]
     Active Substance: QUETIAPINE

REACTIONS (1)
  - International normalised ratio increased [None]

NARRATIVE: CASE EVENT DATE: 20141107
